FAERS Safety Report 24992700 (Version 2)
Quarter: 2025Q2

REPORT INFORMATION
  Report Type: Spontaneous
  Country: JP (occurrence: JP)
  Receive Date: 20250221
  Receipt Date: 20250405
  Transmission Date: 20250717
  Serious: Yes (Death, Other)
  Sender: ROCHE
  Company Number: JP-CHUGAI-2025004660

PATIENT
  Age: 49 Year
  Sex: Female

DRUGS (2)
  1. CELLCEPT [Suspect]
     Active Substance: MYCOPHENOLATE MOFETIL
     Indication: Systemic lupus erythematosus
     Route: 050
  2. TACROLIMUS [Concomitant]
     Active Substance: TACROLIMUS
     Indication: Systemic lupus erythematosus
     Route: 065

REACTIONS (5)
  - Putamen haemorrhage [Fatal]
  - Posterior reversible encephalopathy syndrome [Unknown]
  - Thrombotic microangiopathy [Unknown]
  - Pulmonary oedema [Unknown]
  - Off label use [Unknown]
